FAERS Safety Report 15154686 (Version 6)
Quarter: 2018Q4

REPORT INFORMATION
  Report Type: Report from Study
  Country: US (occurrence: US)
  Receive Date: 20180717
  Receipt Date: 20181113
  Transmission Date: 20190204
  Serious: Yes (Hospitalization, Other)
  Sender: FDA-Public Use
  Company Number: US-GILEAD-2018-0350286

PATIENT
  Age: 86 Year
  Sex: Female
  Weight: 68.48 kg

DRUGS (10)
  1. TEMAZEPAM. [Concomitant]
     Active Substance: TEMAZEPAM
  2. AMBRISENTAN [Suspect]
     Active Substance: AMBRISENTAN
     Indication: PRODUCT USED FOR UNKNOWN INDICATION
     Dosage: 10 MG, QD
     Route: 048
     Dates: start: 20170831
  3. TORSEMIDE. [Concomitant]
     Active Substance: TORSEMIDE
  4. TREPROSTINIL. [Concomitant]
     Active Substance: TREPROSTINIL
  5. REVATIO [Concomitant]
     Active Substance: SILDENAFIL CITRATE
  6. SERTRALINE [Concomitant]
     Active Substance: SERTRALINE HYDROCHLORIDE
  7. TYVASO [Concomitant]
     Active Substance: TREPROSTINIL
  8. SPIRONOLACTONE. [Concomitant]
     Active Substance: SPIRONOLACTONE
  9. SILDENAFIL. [Concomitant]
     Active Substance: SILDENAFIL
  10. OXYGEN. [Concomitant]
     Active Substance: OXYGEN

REACTIONS (4)
  - Cardiac pacemaker replacement [Unknown]
  - Bundle branch block right [Unknown]
  - Device related infection [Not Recovered/Not Resolved]
  - Syncope [Recovered/Resolved]

NARRATIVE: CASE EVENT DATE: 20180625
